FAERS Safety Report 5261747-0 (Version None)
Quarter: 2007Q1

REPORT INFORMATION
  Report Type: 
  Country: None (occurrence: None)
  Receive Date: 20061215
  Receipt Date: 20051208
  Transmission Date: 20070707
  Serious: No
  Sender: FDA-Public Use
  Company Number: 05H-163-0304139-00

PATIENT

DRUGS (1)
  1. MORPHINE SULFATE [Suspect]
     Dates: start: 20051201, end: 20051201

REACTIONS (2)
  - OVERDOSE [None]
  - UNEVALUABLE EVENT [None]
